FAERS Safety Report 17426916 (Version 2)
Quarter: 2020Q1

REPORT INFORMATION
  Report Type: Report from Study
  Country: CO (occurrence: CO)
  Receive Date: 20200217
  Receipt Date: 20200228
  Transmission Date: 20200409
  Serious: Yes (Death, Life-Threatening, Hospitalization)
  Sender: FDA-Public Use
  Company Number: NVSC2019CO056029

PATIENT
  Age: 75 Year
  Sex: Female
  Weight: 70 kg

DRUGS (6)
  1. FOLIC ACID. [Concomitant]
     Active Substance: FOLIC ACID
     Indication: HYPOVITAMINOSIS
     Dosage: UNK UNK, QD
     Route: 048
  2. CYCLOSPORINE. [Suspect]
     Active Substance: CYCLOSPORINE
     Indication: APLASTIC ANAEMIA
     Dosage: 500 MG, Q12H
     Route: 048
  3. REVOLADE [Suspect]
     Active Substance: ELTROMBOPAG
     Indication: APLASTIC ANAEMIA
     Dosage: 50 MG, QD
     Route: 048
     Dates: start: 201911
  4. TRANEXAMIC ACID. [Concomitant]
     Active Substance: TRANEXAMIC ACID
     Indication: COAGULOPATHY
     Dosage: UNK UNK, Q12H
     Route: 048
  5. REVOLADE [Suspect]
     Active Substance: ELTROMBOPAG
     Dosage: 75 MG, QD
     Route: 048
     Dates: start: 201912
  6. REVOLADE [Suspect]
     Active Substance: ELTROMBOPAG
     Dosage: 100 MG, QD
     Route: 048

REACTIONS (15)
  - Haemoglobin increased [Unknown]
  - Inflammation [Unknown]
  - Platelet count increased [Unknown]
  - Haemoglobin decreased [Recovering/Resolving]
  - Bone marrow failure [Unknown]
  - Platelet count decreased [Unknown]
  - Oedema [Unknown]
  - Haematoma [Unknown]
  - Haemoglobin decreased [Unknown]
  - Petechiae [Unknown]
  - Pneumonia [Unknown]
  - Eye infection [Unknown]
  - Death [Fatal]
  - Intraocular pressure increased [Unknown]
  - Product use in unapproved indication [Unknown]

NARRATIVE: CASE EVENT DATE: 20200210
